FAERS Safety Report 13760366 (Version 1)
Quarter: 2017Q3

REPORT INFORMATION
  Report Type: Spontaneous
  Country: ES (occurrence: ES)
  Receive Date: 20170717
  Receipt Date: 20170717
  Transmission Date: 20171127
  Serious: Yes (Hospitalization)
  Sender: FDA-Public Use
  Company Number: PHHY2017ES102394

PATIENT
  Age: 86 Year
  Sex: Male

DRUGS (5)
  1. SERTRALINE [Suspect]
     Active Substance: SERTRALINE HYDROCHLORIDE
     Indication: SENILE DEMENTIA
     Dosage: 50 MG, QD
     Route: 048
     Dates: start: 20170131
  2. RIVOTRIL [Concomitant]
     Active Substance: CLONAZEPAM
     Indication: AGITATION
     Dosage: 2.5 MG, QD
     Route: 048
     Dates: start: 20170131
  3. LORMETAZEPAM [Concomitant]
     Active Substance: LORMETAZEPAM
     Indication: INSOMNIA
     Dosage: 1 MG, BID
     Route: 048
     Dates: start: 201701, end: 20170221
  4. TAMSULOSINE HCL [Concomitant]
     Active Substance: TAMSULOSIN
     Indication: BENIGN PROSTATIC HYPERPLASIA
     Dosage: 0.4 MG, QD
     Route: 048
     Dates: start: 201701, end: 20170221
  5. SINTROM [Interacting]
     Active Substance: ACENOCOUMAROL
     Indication: ATRIAL FIBRILLATION
     Dosage: UNK
     Route: 048
     Dates: end: 20170221

REACTIONS (1)
  - Coagulopathy [Recovering/Resolving]

NARRATIVE: CASE EVENT DATE: 20170221
